FAERS Safety Report 9716542 (Version 1)
Quarter: 2013Q4

REPORT INFORMATION
  Report Type: Spontaneous
  Country: US (occurrence: US)
  Receive Date: 20131127
  Receipt Date: 20131127
  Transmission Date: 20140711
  Serious: No
  Sender: FDA-Public Use
  Company Number: US-PFIZER INC-2013333463

PATIENT
  Age: 7 Month
  Sex: Male
  Weight: 8.62 kg

DRUGS (2)
  1. CONCENTRATED MOTRIN INFANTS DYE-FREE DROPS [Suspect]
     Indication: PYREXIA
     Dosage: 1.25 ML, ONCE EVERY 8 HOURS
     Route: 048
     Dates: start: 20130904, end: 20130906
  2. CONCENTRATED MOTRIN INFANTS DYE-FREE DROPS [Suspect]
     Indication: SNEEZING

REACTIONS (5)
  - Drug dispensing error [Unknown]
  - Poor quality drug administered [Unknown]
  - Insomnia [Unknown]
  - Crying [Unknown]
  - Product quality issue [Unknown]
